FAERS Safety Report 20015497 (Version 1)
Quarter: 2021Q4

REPORT INFORMATION
  Report Type: Spontaneous
  Country: US (occurrence: None)
  Receive Date: 20211029
  Receipt Date: 20211029
  Transmission Date: 20220303
  Serious: Yes (Hospitalization)
  Sender: FDA-Public Use
  Company Number: None

PATIENT
  Age: 45 Year
  Sex: Female

DRUGS (3)
  1. IMATINIB [Suspect]
     Active Substance: IMATINIB
     Indication: Neoplasm
     Dosage: FREQUENCY : TWICE A DAY;?
     Route: 048
     Dates: start: 20210727
  2. VANCOMYCIN [Concomitant]
     Active Substance: VANCOMYCIN
  3. VANCOMYICN INJ [Concomitant]

REACTIONS (2)
  - Abdominal infection [None]
  - Therapy interrupted [None]

NARRATIVE: CASE EVENT DATE: 20211015
